FAERS Safety Report 24888580 (Version 3)
Quarter: 2025Q3

REPORT INFORMATION
  Report Type: Report from Study
  Country: CA (occurrence: CA)
  Receive Date: 20250127
  Receipt Date: 20250707
  Transmission Date: 20251021
  Serious: Yes (Other)
  Sender: TAKEDA
  Company Number: CA-TAKEDA-2025TUS006898

PATIENT
  Sex: Male
  Weight: 80 kg

DRUGS (12)
  1. VEDOLIZUMAB [Suspect]
     Active Substance: VEDOLIZUMAB
     Indication: Colitis ulcerative
  2. VEDOLIZUMAB [Suspect]
     Active Substance: VEDOLIZUMAB
  3. VEDOLIZUMAB [Suspect]
     Active Substance: VEDOLIZUMAB
  4. PENTASA [Concomitant]
     Active Substance: MESALAMINE
  5. RILUZOLE [Concomitant]
     Active Substance: RILUZOLE
  6. LORAZEPAM [Concomitant]
     Active Substance: LORAZEPAM
  7. PANTOPRAZOLE SODIUM [Concomitant]
     Active Substance: PANTOPRAZOLE SODIUM
  8. EYLEA [Concomitant]
     Active Substance: AFLIBERCEPT
  9. FISH OIL [Concomitant]
     Active Substance: FISH OIL
  10. RANITIDINE [Concomitant]
     Active Substance: RANITIDINE
  11. RABEPRAZOLE [Concomitant]
     Active Substance: RABEPRAZOLE
  12. METHADONE [Concomitant]
     Active Substance: METHADONE HYDROCHLORIDE

REACTIONS (6)
  - Amyotrophic lateral sclerosis [Recovering/Resolving]
  - Carpal tunnel syndrome [Recovering/Resolving]
  - Impaired quality of life [Unknown]
  - Weight decreased [Recovering/Resolving]
  - Muscle atrophy [Recovering/Resolving]
  - Somnolence [Unknown]
